FAERS Safety Report 6762065-1 (Version None)
Quarter: 2010Q2

REPORT INFORMATION
  Report Type: 
  Country: None (occurrence: None)
  Receive Date: 20100609
  Receipt Date: 20100527
  Transmission Date: 20101027
  Serious: Yes (Hospitalization)
  Sender: FDA-Public Use
  Company Number: NL-CELGENEUS-114-20785-10052317

PATIENT
  Sex: Female
  Weight: 58 kg

DRUGS (12)
  1. THALIDOMIDE [Suspect]
     Indication: MULTIPLE MYELOMA
     Route: 048
     Dates: start: 20100518, end: 20100525
  2. MELPHALAN [Suspect]
     Indication: MULTIPLE MYELOMA
     Route: 048
     Dates: start: 20100518, end: 20100525
  3. PREDNISONE [Suspect]
     Indication: MULTIPLE MYELOMA
     Route: 048
     Dates: start: 20100518, end: 20100525
  4. PRIMPERAN TAB [Concomitant]
     Indication: DRUG USE FOR UNKNOWN INDICATION
     Route: 065
  5. ACETYLSCARDIO [Concomitant]
     Indication: DRUG USE FOR UNKNOWN INDICATION
     Route: 048
  6. AMLODIPINE [Concomitant]
     Indication: DRUG USE FOR UNKNOWN INDICATION
     Route: 048
  7. DURAGESIC-100 [Concomitant]
     Indication: DRUG USE FOR UNKNOWN INDICATION
     Route: 065
  8. FUROSEMIDE [Concomitant]
     Indication: DRUG USE FOR UNKNOWN INDICATION
     Route: 048
  9. MOVICOLON [Concomitant]
     Indication: DRUG USE FOR UNKNOWN INDICATION
     Route: 065
  10. ORAMORPH SR [Concomitant]
     Indication: DRUG USE FOR UNKNOWN INDICATION
     Route: 065
  11. PARACETAMOL [Concomitant]
     Indication: DRUG USE FOR UNKNOWN INDICATION
     Route: 065
  12. NOVORAPID FLEXPEN [Concomitant]
     Indication: DRUG USE FOR UNKNOWN INDICATION
     Route: 065

REACTIONS (1)
  - RIB FRACTURE [None]
